FAERS Safety Report 16312517 (Version 1)
Quarter: 2019Q2

REPORT INFORMATION
  Report Type: Spontaneous
  Country: GR (occurrence: GR)
  Receive Date: 20190515
  Receipt Date: 20190515
  Transmission Date: 20190711
  Serious: Yes (Death, Life-Threatening, Hospitalization, Other)
  Sender: FDA-Public Use
  Company Number: GR-AUROBINDO-AUR-APL-2019-026090

PATIENT

DRUGS (6)
  1. METFORMIN [Suspect]
     Active Substance: METFORMIN HYDROCHLORIDE
     Indication: PRODUCT USED FOR UNKNOWN INDICATION
     Dosage: UNK
     Route: 065
  2. ACETAMINOPHEN. [Concomitant]
     Active Substance: ACETAMINOPHEN
     Indication: HEADACHE
     Dosage: UNK
     Route: 065
  3. ENOXAPARIN SODIUM. [Suspect]
     Active Substance: ENOXAPARIN SODIUM
     Indication: PRODUCT USED FOR UNKNOWN INDICATION
     Dosage: 60 MILLIGRAM, TWO TIMES A DAY
     Route: 058
  4. CLOPIDOGREL HYDROGEN SULFATE [Suspect]
     Active Substance: CLOPIDOGREL BISULFATE
     Indication: PRODUCT USED FOR UNKNOWN INDICATION
     Dosage: UNK
     Route: 065
  5. SITAGLIPTIN [Suspect]
     Active Substance: SITAGLIPTIN
     Indication: PRODUCT USED FOR UNKNOWN INDICATION
     Dosage: UNK
     Route: 065
  6. IRBESARTAN. [Suspect]
     Active Substance: IRBESARTAN
     Indication: PRODUCT USED FOR UNKNOWN INDICATION
     Dosage: UNK
     Route: 065

REACTIONS (19)
  - Depressed level of consciousness [Unknown]
  - Hyperglycaemic hyperosmolar nonketotic syndrome [Unknown]
  - Conjunctival oedema [Unknown]
  - Ophthalmoplegia [Unknown]
  - Acute sinusitis [Unknown]
  - Intraventricular haemorrhage [Fatal]
  - Facial paralysis [Unknown]
  - Pyrexia [Unknown]
  - Subarachnoid haemorrhage [Fatal]
  - Corneal reflex decreased [Unknown]
  - Pyelonephritis [Unknown]
  - Somnolence [Unknown]
  - Sinusitis [Unknown]
  - Exophthalmos [Unknown]
  - Death [Fatal]
  - Cavernous sinus thrombosis [Unknown]
  - Headache [Unknown]
  - Loss of consciousness [Unknown]
  - Pleocytosis [Unknown]
